FAERS Safety Report 6522350-5 (Version None)
Quarter: 2009Q4

REPORT INFORMATION
  Report Type: 
  Country: None (occurrence: None)
  Receive Date: 20091230
  Receipt Date: 20091229
  Transmission Date: 20100525
  Serious: Yes (Other)
  Sender: FDA-Public Use
  Company Number: D0062938A

PATIENT
  Sex: Female
  Weight: 33 kg

DRUGS (2)
  1. LAMICTAL [Suspect]
     Indication: EPILEPSY
     Dosage: 50MG TWICE PER DAY
     Route: 048
  2. TOPAMAX [Concomitant]
     Dosage: 100MG PER DAY
     Route: 065

REACTIONS (11)
  - ABDOMINAL PAIN [None]
  - EPISTAXIS [None]
  - HEADACHE [None]
  - ILL-DEFINED DISORDER [None]
  - LEUKOPENIA [None]
  - LYMPHADENOPATHY [None]
  - NEUTROPENIA [None]
  - PYREXIA [None]
  - SWELLING FACE [None]
  - THROMBOCYTOPENIA [None]
  - VIRAL INFECTION [None]
